FAERS Safety Report 13152940 (Version 1)
Quarter: 2017Q1

REPORT INFORMATION
  Report Type: Spontaneous
  Country: TN (occurrence: TN)
  Receive Date: 20170126
  Receipt Date: 20170126
  Transmission Date: 20170428
  Serious: Yes (Hospitalization)
  Sender: FDA-Public Use
  Company Number: TN-ROCHE-1883614

PATIENT
  Age: 37 Year
  Sex: Female

DRUGS (5)
  1. CYCLOPHOSPHAMIDE. [Concomitant]
     Active Substance: CYCLOPHOSPHAMIDE
  2. VINCRISTINE [Concomitant]
     Active Substance: VINCRISTINE
  3. DOXORUBICIN [Concomitant]
     Active Substance: DOXORUBICIN
  4. PREDNISOLONE. [Concomitant]
     Active Substance: PREDNISOLONE
  5. MABTHERA [Suspect]
     Active Substance: RITUXIMAB
     Indication: DIFFUSE LARGE B-CELL LYMPHOMA
     Route: 042

REACTIONS (3)
  - Hyponatraemia [Unknown]
  - Hypokalaemia [Unknown]
  - Arrhythmia [Unknown]
